FAERS Safety Report 10305488 (Version 1)
Quarter: 2014Q3

REPORT INFORMATION
  Report Type: Spontaneous
  Country: US (occurrence: None)
  Receive Date: 20140710
  Receipt Date: 20140710
  Transmission Date: 20150326
  Serious: Yes (Hospitalization)
  Sender: FDA-Public Use
  Company Number: POI0573201400056

PATIENT
  Age: 14 Month
  Sex: Female
  Weight: 11.4 kg

DRUGS (1)
  1. NIFEDIPINE. [Suspect]
     Active Substance: NIFEDIPINE
     Dosage: (40 CAPSULES, ONCE)
     Route: 048
     Dates: start: 1990, end: 1990

REACTIONS (16)
  - Metabolic acidosis [None]
  - Sinus tachycardia [None]
  - Visual field defect [None]
  - Atrioventricular block complete [None]
  - Toxicity to various agents [None]
  - Speech disorder developmental [None]
  - Accidental exposure to product by child [None]
  - Cardiac arrest [None]
  - Accidental overdose [None]
  - Unresponsive to stimuli [None]
  - Blood glucose increased [None]
  - Generalised tonic-clonic seizure [None]
  - Hypotension [None]
  - Hyperglycaemia [None]
  - Cerebral infarction [None]
  - Pulmonary oedema [None]

NARRATIVE: CASE EVENT DATE: 199007
